FAERS Safety Report 24718570 (Version 1)
Quarter: 2024Q4

REPORT INFORMATION
  Report Type: Spontaneous
  Country: NL (occurrence: NL)
  Receive Date: 20241210
  Receipt Date: 20241210
  Transmission Date: 20250115
  Serious: Yes (Hospitalization)
  Sender: TEVA
  Company Number: None

PATIENT
  Age: 79 Year
  Sex: Female
  Weight: 62 kg

DRUGS (4)
  1. FENTANYL [Suspect]
     Active Substance: FENTANYL
     Indication: Pain
     Dosage: BRAND NAME NOT SPECIFIED
     Route: 065
     Dates: start: 20240405
  2. ZADITEN [Concomitant]
     Active Substance: KETOTIFEN FUMARATE
     Indication: Product used for unknown indication
     Route: 065
  3. OXYCODONE HYDROCHLORIDE [Concomitant]
     Active Substance: OXYCODONE HYDROCHLORIDE
     Indication: Anaesthesia
     Dosage: BRAND NAME NOT SPECIFIED
     Route: 065
     Dates: start: 19650101
  4. INFLUENZA VIRUS VACCINE [Suspect]
     Active Substance: INFLUENZA VIRUS VACCINE
     Indication: Influenza immunisation
     Dosage: HALF - HALF HOUR BREAK - 2ND HALF (PRESCRIPTION), INFLUENZA VACCINE (NOT SPECIFIED) / BRAND NAME ...
     Route: 065
     Dates: start: 20241016

REACTIONS (5)
  - Intestinal haemorrhage [Unknown]
  - Malaise [Recovering/Resolving]
  - Vertigo [Recovering/Resolving]
  - Abdominal pain [Recovering/Resolving]
  - Fatigue [Recovering/Resolving]
